FAERS Safety Report 7113015-X (Version None)
Quarter: 2010Q4

REPORT INFORMATION
  Report Type: 
  Country: None (occurrence: None)
  Receive Date: 20101119
  Receipt Date: 20101112
  Transmission Date: 20110411
  Serious: Yes (Hospitalization, Other)
  Sender: FDA-Public Use
  Company Number: DE-PFIZER INC-2010046827

PATIENT
  Age: 45 Year
  Sex: Female
  Weight: 90.5 kg

DRUGS (5)
  1. SOMATROPIN [Suspect]
     Indication: HYPOPITUITARISM
     Dosage: 0.1 MG, 1X/DAY
     Route: 058
     Dates: start: 20090316, end: 20090805
  2. SOMATROPIN [Suspect]
     Dosage: 0.2 MG, 1X/DAY
     Route: 058
     Dates: start: 20090806, end: 20100311
  3. HYDROCORTISONE [Concomitant]
     Indication: BLOOD CORTISOL DECREASED
     Dosage: 10 MG, 1X/DAY
     Route: 048
     Dates: start: 20090806
  4. LEVOTHYROXINE SODIUM [Concomitant]
     Indication: THYROIDITIS
     Dosage: 125 UG, 1X/DAY
     Route: 048
     Dates: start: 20080901
  5. DESMOPRESSIN [Concomitant]
     Indication: DIABETES INSIPIDUS
     Dosage: 0.03 MG, 2X/DAY
     Dates: start: 20080901

REACTIONS (2)
  - CRANIOPHARYNGIOMA [None]
  - NEOPLASM RECURRENCE [None]
